FAERS Safety Report 6700066-X (Version None)
Quarter: 2010Q2

REPORT INFORMATION
  Report Type: 
  Country: None (occurrence: None)
  Receive Date: 20100428
  Receipt Date: 20100406
  Transmission Date: 20101027
  Serious: No
  Sender: FDA-Public Use
  Company Number: US-B.I. PHARMACEUTICALS,INC./RIDGEFIELD-2010-BP-03959BP

PATIENT
  Age: 75 Year
  Sex: Male

DRUGS (5)
  1. ATROVENT HFA [Suspect]
     Indication: EMPHYSEMA
     Dosage: 136 MCG
     Route: 055
     Dates: start: 20080101
  2. WARFARIN SODIUM [Concomitant]
  3. K-SUPPLEMENT [Concomitant]
  4. FUROSEMIDE [Concomitant]
  5. FLOVENT [Concomitant]

REACTIONS (2)
  - ASTHENIA [None]
  - PNEUMONIA [None]
